FAERS Safety Report 25794716 (Version 2)
Quarter: 2025Q4

REPORT INFORMATION
  Report Type: Report from Study
  Country: PK (occurrence: PK)
  Receive Date: 20250912
  Receipt Date: 20251017
  Transmission Date: 20260117
  Serious: Yes (Other)
  Sender: ROCHE
  Company Number: PK-ROCHE-10000385783

PATIENT
  Age: 55 Year
  Sex: Female

DRUGS (1)
  1. HERCEPTIN [Suspect]
     Active Substance: TRASTUZUMAB
     Indication: Breast cancer
     Dosage: MOST RECENT DOSE ON 15-SEP-2025
     Route: 058
     Dates: start: 20240919

REACTIONS (2)
  - Metastasis [Unknown]
  - Disease progression [Unknown]

NARRATIVE: CASE EVENT DATE: 20250826
